FAERS Safety Report 23134737 (Version 1)
Quarter: 2023Q4

REPORT INFORMATION
  Report Type: Spontaneous
  Country: US (occurrence: US)
  Receive Date: 20231101
  Receipt Date: 20231101
  Transmission Date: 20240110
  Serious: Yes (Other)
  Sender: FDA-Public Use
  Company Number: US-AMGEN-USASP2023191066

PATIENT
  Age: 20 Month
  Sex: Male

DRUGS (2)
  1. ROMIPLOSTIM [Suspect]
     Active Substance: ROMIPLOSTIM
     Indication: Wiskott-Aldrich syndrome
     Dosage: UNK
     Route: 065
  2. BUSULFAN [Concomitant]
     Active Substance: BUSULFAN
     Dosage: AUC WAS 81.2 MG X H/L
     Route: 065

REACTIONS (4)
  - Thrombocytopenia [Unknown]
  - Infection [Recovering/Resolving]
  - Eczema [Recovering/Resolving]
  - Off label use [Unknown]
